FAERS Safety Report 6663499-6 (Version None)
Quarter: 2010Q2

REPORT INFORMATION
  Report Type: 
  Country: None (occurrence: None)
  Receive Date: 20100401
  Receipt Date: 20100326
  Transmission Date: 20101027
  Serious: Yes (Hospitalization)
  Sender: FDA-Public Use
  Company Number: US-BRISTOL-MYERS SQUIBB COMPANY-15011893

PATIENT
  Age: 46 Year
  Sex: Female

DRUGS (2)
  1. ABILIFY [Suspect]
     Indication: BIPOLAR DISORDER
  2. OPIATE SUBSTANCES [Suspect]

REACTIONS (3)
  - CONVULSION [None]
  - DRUG ABUSE [None]
  - PSYCHIATRIC DECOMPENSATION [None]
